FAERS Safety Report 21464099 (Version 2)
Quarter: 2022Q4

REPORT INFORMATION
  Report Type: Report from Study
  Country: HN (occurrence: HN)
  Receive Date: 20221017
  Receipt Date: 20221031
  Transmission Date: 20230112
  Serious: Yes (Other)
  Sender: FDA-Public Use
  Company Number: HN-NOVARTISPH-NVSC2022HN230716

PATIENT
  Sex: Female

DRUGS (4)
  1. EXFORGE [Suspect]
     Active Substance: AMLODIPINE BESYLATE\VALSARTAN
     Indication: Hypertension
     Dosage: 5/320 MG, QD (APPROXIMATELY 3 MONTHS AGO)
     Route: 048
     Dates: start: 2022, end: 202209
  2. EXFORGE HCT [Suspect]
     Active Substance: AMLODIPINE BESYLATE\HYDROCHLOROTHIAZIDE\VALSARTAN
     Indication: Hypertension
     Dosage: 10/320/25 MG, QD
     Route: 048
     Dates: start: 202209
  3. EXFORGE HCT [Suspect]
     Active Substance: AMLODIPINE BESYLATE\HYDROCHLOROTHIAZIDE\VALSARTAN
     Dosage: 10/320/25 MG (APPROXIMATELY 3 MONTHS AGO)
     Route: 048
  4. OMEPRAZOLE [Concomitant]
     Active Substance: OMEPRAZOLE
     Indication: Gastric disorder
     Dosage: 1 DOSAGE FORM, QD
     Route: 065

REACTIONS (4)
  - Pulmonary embolism [Recovered/Resolved]
  - Diabetes mellitus [Not Recovered/Not Resolved]
  - Memory impairment [Recovered/Resolved]
  - Pulmonary mass [Not Recovered/Not Resolved]
